FAERS Safety Report 6396235-1 (Version None)
Quarter: 2009Q4

REPORT INFORMATION
  Report Type: 
  Country: None (occurrence: None)
  Receive Date: 20091012
  Receipt Date: 20091002
  Transmission Date: 20100525
  Serious: Yes (Hospitalization)
  Sender: FDA-Public Use
  Company Number: US-BIOGENIDEC-2009BI021367

PATIENT
  Age: 57 Year
  Sex: Female

DRUGS (1)
  1. TYSABRI [Suspect]
     Indication: MULTIPLE SCLEROSIS
     Route: 042
     Dates: start: 20070511

REACTIONS (5)
  - ARTERIAL RUPTURE [None]
  - ASTHENIA [None]
  - FATIGUE [None]
  - ILL-DEFINED DISORDER [None]
  - URINARY TRACT INFECTION [None]
